FAERS Safety Report 4286543-2 (Version None)
Quarter: 2004Q1

REPORT INFORMATION
  Report Type: 
  Country: None (occurrence: None)
  Receive Date: 20040205
  Receipt Date: 20040205
  Transmission Date: 20041129
  Serious: Yes (Other)
  Sender: FDA-Public Use
  Company Number: None

PATIENT
  Sex: Male
  Weight: 74.8435 kg

DRUGS (3)
  1. CORICIDIN D SRT [Suspect]
     Indication: SINUS HEADACHE
     Dosage: 2 TABS DAILY ORAL
     Route: 048
  2. MOTRIN [Concomitant]
  3. TYLENOL (CAPLET) [Concomitant]

REACTIONS (3)
  - AMNESIA [None]
  - CEREBROVASCULAR ACCIDENT [None]
  - DIZZINESS [None]
